FAERS Safety Report 8193678-0 (Version None)
Quarter: 2012Q1

REPORT INFORMATION
  Report Type: 
  Country: None (occurrence: None)
  Receive Date: 20120308
  Receipt Date: 20120302
  Transmission Date: 20120608
  Serious: Yes (Death)
  Sender: FDA-Public Use
  Company Number: US-MEDIMMUNE-MEDI-0014698

PATIENT
  Sex: Male
  Weight: 5.857 kg

DRUGS (5)
  1. SYNAGIS [Suspect]
     Indication: HEART DISEASE CONGENITAL
     Route: 030
     Dates: start: 20111118, end: 20120113
  2. PREVACID [Concomitant]
     Route: 048
  3. LASIX [Concomitant]
     Route: 048
  4. DIGOXIN [Concomitant]
     Route: 048
  5. ALDACTONE [Concomitant]
     Route: 048

REACTIONS (1)
  - CARDIAC FAILURE CONGESTIVE [None]
